FAERS Safety Report 10028696 (Version 2)
Quarter: 2014Q3

REPORT INFORMATION
  Report Type: Spontaneous
  Country: US (occurrence: US)
  Receive Date: 20140321
  Receipt Date: 20140917
  Transmission Date: 20150326
  Serious: Yes (Other)
  Sender: FDA-Public Use
  Company Number: US-BAYER-2014-041102

PATIENT
  Age: 30 Week
  Weight: 2 kg

DRUGS (1)
  1. MIRENA [Suspect]
     Active Substance: LEVONORGESTREL
     Route: 064

REACTIONS (3)
  - Pneumothorax [None]
  - Premature baby [None]
  - Low birth weight baby [None]

NARRATIVE: CASE EVENT DATE: 20111212
